FAERS Safety Report 7711604-2 (Version None)
Quarter: 2011Q3

REPORT INFORMATION
  Report Type: 
  Country: None (occurrence: None)
  Receive Date: 20110826
  Receipt Date: 20110518
  Transmission Date: 20111222
  Serious: No
  Sender: FDA-Public Use
  Company Number: US-BRISTOL-MYERS SQUIBB COMPANY-15759855

PATIENT

DRUGS (1)
  1. ONGLYZA [Suspect]

REACTIONS (2)
  - RENAL IMPAIRMENT [None]
  - DEHYDRATION [None]
